FAERS Safety Report 7755995-5 (Version None)
Quarter: 2011Q3

REPORT INFORMATION
  Report Type: 
  Country: None (occurrence: None)
  Receive Date: 20110916
  Receipt Date: 20110908
  Transmission Date: 20111222
  Serious: Yes (Death)
  Sender: FDA-Public Use
  Company Number: HU-ASTRAZENECA-2011SE54787

PATIENT
  Sex: Male

DRUGS (1)
  1. SEROQUEL XR [Suspect]
     Indication: SCHIZOPHRENIA
     Route: 048
     Dates: start: 20100802, end: 20110101

REACTIONS (1)
  - CARDIAC FAILURE ACUTE [None]
